FAERS Safety Report 10229593 (Version 1)
Quarter: 2014Q2

REPORT INFORMATION
  Report Type: Spontaneous
  Country: US (occurrence: None)
  Receive Date: 20140610
  Receipt Date: 20140610
  Transmission Date: 20141212
  Serious: Yes (Disabling, Other)
  Sender: FDA-Public Use
  Company Number: None

PATIENT
  Age: 56 Year
  Sex: Female
  Weight: 51.26 kg

DRUGS (8)
  1. LATUDA (LURASIDONE HCL) TABLETS SUNOVIO [Suspect]
     Indication: BIPOLAR I DISORDER
     Dosage: BEDTIME, BY MOUTH
     Route: 048
     Dates: start: 20131215, end: 20140308
  2. AVONEX [Concomitant]
  3. PREMPRO [Concomitant]
  4. METOPROLOL [Concomitant]
  5. TRILEPTAL [Concomitant]
  6. VITAMIN D [Concomitant]
  7. FLEXERIL [Concomitant]
  8. ULTRAM [Concomitant]

REACTIONS (9)
  - Akathisia [None]
  - Sleep disorder [None]
  - Muscle disorder [None]
  - Neck pain [None]
  - Feeling abnormal [None]
  - Anxiety [None]
  - Disturbance in attention [None]
  - Syncope [None]
  - Temperature regulation disorder [None]
